FAERS Safety Report 6576901-5 (Version None)
Quarter: 2010Q1

REPORT INFORMATION
  Report Type: 
  Country: None (occurrence: None)
  Receive Date: 20100210
  Receipt Date: 20100202
  Transmission Date: 20100710
  Serious: Yes (Hospitalization, Other)
  Sender: FDA-Public Use
  Company Number: B0625541A

PATIENT
  Sex: Female
  Weight: 81 kg

DRUGS (5)
  1. LAMICTAL [Suspect]
     Indication: DRUG USE FOR UNKNOWN INDICATION
     Dosage: 50MG TWICE PER DAY
     Route: 065
     Dates: start: 20091211, end: 20100110
  2. TOPIRAMATE [Concomitant]
     Dosage: 100MG TWICE PER DAY
     Route: 065
  3. LEXAPRO [Concomitant]
     Dosage: 20MG IN THE MORNING
     Route: 065
     Dates: start: 20010101
  4. KARVEZIDE [Concomitant]
     Route: 065
     Dates: start: 20060101
  5. PROPYLTHIOURACIL TAB [Concomitant]
     Dosage: 50MG PER DAY
     Route: 065

REACTIONS (4)
  - BODY TEMPERATURE INCREASED [None]
  - FEELING ABNORMAL [None]
  - OEDEMA MOUTH [None]
  - RASH MACULO-PAPULAR [None]
